FAERS Safety Report 12945297 (Version 1)
Quarter: 2016Q4

REPORT INFORMATION
  Report Type: Spontaneous
  Country: US (occurrence: US)
  Receive Date: 20161115
  Receipt Date: 20161115
  Transmission Date: 20170207
  Serious: Yes (Life-Threatening, Hospitalization, Other)
  Sender: FDA-Public Use
  Company Number: None

PATIENT
  Age: 62 Year
  Sex: Male

DRUGS (1)
  1. XARELTO [Suspect]
     Active Substance: RIVAROXABAN
     Route: 048
     Dates: start: 20151106, end: 20151110

REACTIONS (6)
  - Speech disorder [None]
  - Internal haemorrhage [None]
  - Pulmonary haemorrhage [None]
  - Coma [None]
  - Pneumonia [None]
  - Faeces discoloured [None]

NARRATIVE: CASE EVENT DATE: 20151111
